FAERS Safety Report 8629475 (Version 2)
Quarter: 2012Q4

REPORT INFORMATION
  Report Type: 
  Country: US (occurrence: US)
  Receive Date: 20120622
  Receipt Date: 20120917
  Transmission Date: 20130627
  Serious: Yes (Life-Threatening, Hospitalization)
  Sender: FDA-Public Use
  Company Number: US-BAYER-2012-059854

PATIENT
  Age: 29 Year
  Sex: Female
  Weight: 81.63 kg

DRUGS (8)
  1. YASMIN [Suspect]
     Indication: ACNE
     Dosage: UNK
     Dates: start: 20100331, end: 20101008
  2. YASMIN [Suspect]
     Indication: POLYCYSTIC OVARIES
  3. NSAID^S [Concomitant]
     Dosage: At various times
  4. VITAMIN C [Concomitant]
     Indication: SUPPLEMENTATION THERAPY
     Dosage: UNK
     Dates: start: 2009
  5. NAPROXEN [Concomitant]
     Dosage: UNK
     Dates: start: 2008, end: 2009
  6. METFORMIN [Concomitant]
     Indication: POLYCYSTIC OVARIES
     Dosage: UNK
     Dates: start: 2010
  7. UNCODEABLE ^UNCLASSIFIABLE^ [Concomitant]
     Indication: MEDICAL DIET
     Dosage: UNK
     Dates: start: 20100801, end: 20100928
  8. MULTIVITAMIN [Concomitant]

REACTIONS (10)
  - Pulmonary embolism [None]
  - Injury [None]
  - Chest pain [None]
  - Dyspnoea [None]
  - Pulmonary infarction [None]
  - Mitral valve incompetence [None]
  - Tricuspid valve incompetence [None]
  - Pain [None]
  - Anxiety disorder [None]
  - Post-traumatic stress disorder [None]
